FAERS Safety Report 18833394 (Version 2)
Quarter: 2021Q1

REPORT INFORMATION
  Report Type: Spontaneous
  Country: JP (occurrence: JP)
  Receive Date: 20210203
  Receipt Date: 20210224
  Transmission Date: 20210419
  Serious: Yes (Hospitalization, Other)
  Sender: FDA-Public Use
  Company Number: JP-TAKEDA-2021TJP002673

PATIENT
  Sex: Male

DRUGS (6)
  1. ADVATE [Suspect]
     Active Substance: ANTIHEMOPHILIC FACTOR, HUMAN RECOMBINANT
     Indication: HAEMORRHAGE PROPHYLAXIS
  2. ADVATE [Suspect]
     Active Substance: ANTIHEMOPHILIC FACTOR, HUMAN RECOMBINANT
     Indication: LARGE INTESTINE OPERATION
     Dosage: UNK
     Route: 042
     Dates: end: 20210219
  3. ADVATE [Suspect]
     Active Substance: ANTIHEMOPHILIC FACTOR, HUMAN RECOMBINANT
     Indication: HAEMORRHAGE PROPHYLAXIS
  4. ADVATE [Suspect]
     Active Substance: ANTIHEMOPHILIC FACTOR, HUMAN RECOMBINANT
     Indication: HAEMORRHAGE PROPHYLAXIS
  5. ADVATE [Suspect]
     Active Substance: ANTIHEMOPHILIC FACTOR, HUMAN RECOMBINANT
     Indication: LARGE INTESTINE OPERATION
     Dosage: UNK
     Route: 042
     Dates: end: 20210219
  6. ADVATE [Suspect]
     Active Substance: ANTIHEMOPHILIC FACTOR, HUMAN RECOMBINANT
     Indication: LARGE INTESTINE OPERATION
     Dosage: UNK
     Route: 042
     Dates: end: 20210219

REACTIONS (2)
  - Colon cancer [Recovering/Resolving]
  - Prescribed overdose [Unknown]

NARRATIVE: CASE EVENT DATE: 202101
